FAERS Safety Report 9231833 (Version 1)
Quarter: 2013Q2

REPORT INFORMATION
  Report Type: Spontaneous
  Country: AU (occurrence: AU)
  Receive Date: 20130415
  Receipt Date: 20130415
  Transmission Date: 20140414
  Serious: Yes (Other)
  Sender: FDA-Public Use
  Company Number: AU-ASTRAZENECA-2013SE23060

PATIENT
  Age: 64 Year
  Sex: Male

DRUGS (10)
  1. ROSUVASTATIN [Suspect]
     Route: 048
     Dates: end: 20121213
  2. VENLAFAXINE HYDROCHLORIDE [Suspect]
     Route: 048
     Dates: end: 20121213
  3. ASPIRIN [Concomitant]
  4. CALCIUM CARBONATE [Concomitant]
  5. FUROSEMIDE [Concomitant]
     Dates: end: 20121213
  6. MAGNESIUM ALGINATE [Concomitant]
  7. METFORMIN HYDROCHLORIDE [Concomitant]
  8. PERINDOPRIL [Concomitant]
  9. SOTALOL HYDROCHLORIDE [Concomitant]
  10. THIAMINE [Concomitant]

REACTIONS (2)
  - Drug-induced liver injury [Recovering/Resolving]
  - Liver function test abnormal [Recovering/Resolving]
